FAERS Safety Report 6219921-2 (Version None)
Quarter: 2009Q2

REPORT INFORMATION
  Report Type: 
  Country: None (occurrence: None)
  Receive Date: 20090609
  Receipt Date: 20090604
  Transmission Date: 20091009
  Serious: Yes (Death)
  Sender: FDA-Public Use
  Company Number: Z0001000A

PATIENT
  Sex: Female
  Weight: 86.5 kg

DRUGS (1)
  1. ROSIGLITAZONE [Suspect]
     Route: 048
     Dates: start: 20090108

REACTIONS (1)
  - SUDDEN CARDIAC DEATH [None]
